FAERS Safety Report 13025451 (Version 2)
Quarter: 2016Q4

REPORT INFORMATION
  Report Type: Spontaneous
  Country: US (occurrence: US)
  Receive Date: 20161214
  Receipt Date: 20161216
  Transmission Date: 20170207
  Serious: No
  Sender: FDA-Public Use
  Company Number: US-B.I. PHARMACEUTICALS,INC./RIDGEFIELD-2016-BI-084312

PATIENT
  Sex: Female

DRUGS (2)
  1. SPIRIVA [Suspect]
     Active Substance: TIOTROPIUM BROMIDE MONOHYDRATE
     Indication: ASTHMA
     Route: 055
     Dates: start: 201603
  2. ALBUTEROL. [Concomitant]
     Active Substance: ALBUTEROL
     Indication: ASTHMA
     Dosage: UNKNOWN;  FORMULATION: INHALATION SPRAY;
     Route: 055

REACTIONS (5)
  - Product quality issue [Unknown]
  - Laryngitis [Unknown]
  - Off label use [Unknown]
  - Oropharyngeal pain [Unknown]
  - Medical device implantation [Unknown]

NARRATIVE: CASE EVENT DATE: 201603
